FAERS Safety Report 24687612 (Version 1)
Quarter: 2024Q4

REPORT INFORMATION
  Report Type: Spontaneous
  Country: TR (occurrence: TR)
  Receive Date: 20241202
  Receipt Date: 20241202
  Transmission Date: 20250115
  Serious: Yes (Death, Other)
  Sender: BAYER HEALTHCARE PHARMACEUTICALS INC.
  Company Number: TR-BAYER-2024A167479

PATIENT
  Age: 50 Year
  Sex: Male

DRUGS (1)
  1. STIVARGA [Suspect]
     Active Substance: REGORAFENIB MONOHYDRATE
     Indication: Colon cancer metastatic
     Dosage: 80 MG, QD
     Dates: start: 202109

REACTIONS (3)
  - Death [Fatal]
  - Colon cancer metastatic [Not Recovered/Not Resolved]
  - Product use issue [None]

NARRATIVE: CASE EVENT DATE: 20210901
